FAERS Safety Report 7740610-7 (Version None)
Quarter: 2011Q3

REPORT INFORMATION
  Report Type: 
  Country: None (occurrence: None)
  Receive Date: 20110909
  Receipt Date: 20110901
  Transmission Date: 20111222
  Serious: Yes (Other)
  Sender: FDA-Public Use
  Company Number: US-SANOFI-AVENTIS-2011SA057695

PATIENT
  Sex: Male

DRUGS (7)
  1. TAXOTERE [Suspect]
     Route: 041
     Dates: start: 20091015, end: 20091015
  2. LUPRON [Concomitant]
  3. TAXOTERE [Suspect]
     Indication: PROSTATE CANCER
     Route: 041
     Dates: start: 20090412, end: 20090412
  4. CASODEX [Concomitant]
  5. KETOCONAZOLE [Concomitant]
  6. HORMONES AND RELATED AGENTS [Concomitant]
  7. HORMONE ANTAGONISTS AND RELATED AGENTS [Concomitant]

REACTIONS (1)
  - CONDITION AGGRAVATED [None]
